FAERS Safety Report 21490143 (Version 2)
Quarter: 2022Q4

REPORT INFORMATION
  Report Type: Spontaneous
  Country: DE (occurrence: None)
  Receive Date: 20221021
  Receipt Date: 20221108
  Transmission Date: 20230113
  Serious: Yes (Other)
  Sender: FDA-Public Use
  Company Number: DE-ROCHE-3202574

PATIENT
  Age: 48 Year
  Sex: Female

DRUGS (4)
  1. GAZYVA [Suspect]
     Active Substance: OBINUTUZUMAB
     Indication: Follicular lymphoma
     Dosage: FIRST LINE WITH BENDAMUSTINE
     Route: 042
     Dates: start: 20220101, end: 20220701
  2. POLIVY [Suspect]
     Active Substance: POLATUZUMAB VEDOTIN-PIIQ
     Indication: Diffuse large B-cell lymphoma
     Dosage: THIRD LINE WITH RITUXIMAB
     Route: 065
     Dates: start: 20220927, end: 20221001
  3. BENDAMUSTINE [Suspect]
     Active Substance: BENDAMUSTINE
     Indication: Follicular lymphoma
     Dosage: FIRST LINE WITH OBINUTUZUMAB
     Route: 065
     Dates: start: 20220101, end: 20220701
  4. RITUXIMAB [Suspect]
     Active Substance: RITUXIMAB
     Indication: Diffuse large B-cell lymphoma
     Dosage: SECOND LINE WITH DA-EPOCH
     Route: 041
     Dates: start: 20220816, end: 20220926

REACTIONS (5)
  - Disease progression [Not Recovered/Not Resolved]
  - Glomerular filtration rate increased [Recovered/Resolved]
  - Aspartate aminotransferase increased [Recovering/Resolving]
  - Alanine aminotransferase increased [Recovering/Resolving]
  - Blood bilirubin increased [Recovering/Resolving]
